FAERS Safety Report 8607838-5 (Version None)
Quarter: 2012Q3

REPORT INFORMATION
  Report Type: 
  Country: None (occurrence: None)
  Receive Date: 20120821
  Receipt Date: 20120816
  Transmission Date: 20120928
  Serious: Yes (Death, Hospitalization)
  Sender: FDA-Public Use
  Company Number: US-INCYTE CORPORATION-2012IN001373

PATIENT
  Sex: Male
  Weight: 99.773 kg

DRUGS (2)
  1. PLAVIX [Concomitant]
  2. JAKAFI [Suspect]
     Indication: MYELOFIBROSIS
     Dosage: NOT SPECIFIED
     Dates: start: 20120503, end: 20120706

REACTIONS (4)
  - POST PROCEDURAL HAEMORRHAGE [None]
  - MYOCARDIAL INFARCTION [None]
  - ADRENOCORTICAL INSUFFICIENCY ACUTE [None]
  - SHOCK HAEMORRHAGIC [None]
